FAERS Safety Report 20907759 (Version 3)
Quarter: 2022Q3

REPORT INFORMATION
  Report Type: Spontaneous
  Country: US (occurrence: US)
  Receive Date: 20220602
  Receipt Date: 20220628
  Transmission Date: 20221027
  Serious: No
  Sender: FDA-Public Use
  Company Number: US-NOVARTISTESTPH-NVSC2022US126673

PATIENT
  Sex: Female

DRUGS (2)
  1. XIIDRA [Suspect]
     Active Substance: LIFITEGRAST
     Indication: Eye disorder
     Dosage: 1 DRP, BID (1 DROP/EYE)
     Route: 047
  2. ROSUVASTATIN [Concomitant]
     Active Substance: ROSUVASTATIN
     Indication: Product used for unknown indication
     Dosage: 2 MG, BID
     Route: 065

REACTIONS (5)
  - Lacrimation increased [Unknown]
  - Eye pain [Unknown]
  - Eye irritation [Unknown]
  - Drug ineffective [Unknown]
  - Vision blurred [Unknown]
